FAERS Safety Report 7935720-5 (Version None)
Quarter: 2011Q4

REPORT INFORMATION
  Report Type: 
  Country: None (occurrence: None)
  Receive Date: 20111123
  Receipt Date: 20111115
  Transmission Date: 20120403
  Serious: Yes (Hospitalization)
  Sender: FDA-Public Use
  Company Number: IT-JNJFOC-20111107374

PATIENT
  Sex: Male

DRUGS (2)
  1. HALDOL [Suspect]
     Indication: PRODUCT USED FOR UNKNOWN INDICATION
     Route: 048
     Dates: start: 20111107, end: 20111108
  2. HEDERIX PLAN [Concomitant]
     Indication: COUGH
     Route: 065

REACTIONS (3)
  - MEDICATION ERROR [None]
  - ASTHENIA [None]
  - SOPOR [None]
